FAERS Safety Report 19575359 (Version 1)
Quarter: 2021Q3

REPORT INFORMATION
  Report Type: Report from Study
  Country: US (occurrence: US)
  Receive Date: 20210719
  Receipt Date: 20210719
  Transmission Date: 20211014
  Serious: No
  Sender: FDA-Public Use
  Company Number: US-VANDA PHARMACEUTICALS, INC-2021TASUS005081

PATIENT
  Age: 53 Year
  Sex: Male
  Weight: 90.7 kg

DRUGS (1)
  1. HETLIOZ [Suspect]
     Active Substance: TASIMELTEON
     Indication: BLINDNESS
     Dosage: 20 MILLIGRAM, QD
     Route: 048
     Dates: start: 20210616

REACTIONS (2)
  - Gastrooesophageal reflux disease [Unknown]
  - Anxiety [Unknown]

NARRATIVE: CASE EVENT DATE: 20210616
